FAERS Safety Report 6006560-1 (Version None)
Quarter: 2008Q4

REPORT INFORMATION
  Report Type: 
  Country: None (occurrence: None)
  Receive Date: 20081217
  Receipt Date: 20081205
  Transmission Date: 20090506
  Serious: Yes (Hospitalization)
  Sender: FDA-Public Use
  Company Number: JP-PFIZER INC-2008098036

PATIENT

DRUGS (12)
  1. SUNITINIB MALATE [Suspect]
     Indication: RENAL CELL CARCINOMA
     Dosage: 50 MG, 1X/DAY
     Route: 048
     Dates: start: 20080917
  2. POVIDONE-IODINE [Suspect]
  3. ALLEGRA [Suspect]
  4. NEOPHAGEN [Suspect]
  5. RESTAMIN [Suspect]
  6. PL [Suspect]
  7. NORVASC [Concomitant]
     Route: 048
  8. ALLOPURINOL [Concomitant]
     Route: 048
  9. URALYT-U [Concomitant]
     Route: 048
  10. ALOSENN [Concomitant]
     Route: 048
  11. MAGNESIUM OXIDE [Concomitant]
     Route: 048
  12. UREPEARL [Concomitant]
     Route: 062
     Dates: start: 20080917

REACTIONS (2)
  - PLATELET COUNT DECREASED [None]
  - URTICARIA [None]
